FAERS Safety Report 4392808-6 (Version None)
Quarter: 2004Q3

REPORT INFORMATION
  Report Type: 
  Country: None (occurrence: None)
  Receive Date: 20040702
  Receipt Date: 20040407
  Transmission Date: 20050211
  Serious: Yes (Other)
  Sender: FDA-Public Use
  Company Number: 2004UW05164

PATIENT
  Age: 53 Year
  Sex: Male
  Weight: 90.2658 kg

DRUGS (4)
  1. CRESTOR [Suspect]
     Indication: HYPERLIPIDAEMIA
     Dosage: 10 MG DAILY PO
     Route: 048
     Dates: start: 20040225, end: 20040316
  2. PROCARDIA [Concomitant]
  3. WELLBUTRIN [Concomitant]
  4. PRINZIDE [Concomitant]

REACTIONS (1)
  - FLUSHING [None]
